FAERS Safety Report 5349254-8 (Version None)
Quarter: 2007Q2

REPORT INFORMATION
  Report Type: 
  Country: None (occurrence: None)
  Receive Date: 20070607
  Receipt Date: 20070530
  Transmission Date: 20071010
  Serious: Yes (Hospitalization)
  Sender: FDA-Public Use
  Company Number: ES-ASTRAZENECA-2007AC01006

PATIENT
  Age: 66 Year
  Sex: Male

DRUGS (6)
  1. TENORMIN 50 [Suspect]
     Dosage: LONG TERM ADMINISTRATION
     Route: 048
     Dates: end: 20061020
  2. LOSARTAN POTASSIUM AND HYDROCHLOROTHIAZIDE [Concomitant]
     Indication: ESSENTIAL HYPERTENSION
     Dosage: LONG TERM ADMINISTRATION
     Route: 048
  3. ZOCOR [Concomitant]
     Dosage: LONG TERM ADMINISTRATION
     Route: 048
  4. OMEPRAZOLE [Concomitant]
     Dosage: LONG TERM ADMINISTRATION
     Route: 048
  5. PLAVIX [Concomitant]
     Dosage: LONG TERM ADMINISTRATION
     Route: 048
  6. ADIRO [Concomitant]
     Dosage: LONG TERM ADMINISTRATION
     Route: 048

REACTIONS (5)
  - BRADYCARDIA [None]
  - COORDINATION ABNORMAL [None]
  - DRY MOUTH [None]
  - HEADACHE [None]
  - PALPITATIONS [None]
